FAERS Safety Report 18246387 (Version 2)
Quarter: 2020Q3

REPORT INFORMATION
  Report Type: Spontaneous
  Country: US (occurrence: US)
  Receive Date: 20200909
  Receipt Date: 20200915
  Transmission Date: 20201103
  Serious: Yes (Other)
  Sender: FDA-Public Use
  Company Number: US-PFIZER INC-2020343977

PATIENT
  Sex: Female

DRUGS (2)
  1. CEPHALEXINE [Suspect]
     Active Substance: CEPHALEXIN
     Dosage: UNK
     Route: 064
  2. AZITHROMYCIN ANHYDROUS. [Suspect]
     Active Substance: AZITHROMYCIN ANHYDROUS
     Dosage: UNK
     Route: 064

REACTIONS (3)
  - Maternal exposure during pregnancy [Unknown]
  - Neonatal respiratory failure [Unknown]
  - Premature baby [Unknown]
